FAERS Safety Report 4957394-8 (Version None)
Quarter: 2006Q1

REPORT INFORMATION
  Report Type: 
  Country: None (occurrence: None)
  Receive Date: 20060327
  Receipt Date: 20060301
  Transmission Date: 20060701
  Serious: Yes (Other)
  Sender: FDA-Public Use
  Company Number: 8015810

PATIENT
  Sex: Male

DRUGS (1)
  1. METADATE CD [Suspect]
     Dosage: PO
     Route: 048

REACTIONS (1)
  - CARDIOMYOPATHY [None]
